FAERS Safety Report 6638786-8 (Version None)
Quarter: 2010Q1

REPORT INFORMATION
  Report Type: 
  Country: None (occurrence: None)
  Receive Date: 20100317
  Receipt Date: 20100308
  Transmission Date: 20100710
  Serious: Yes (Other)
  Sender: FDA-Public Use
  Company Number: US-PFIZER INC-2010030669

PATIENT
  Sex: Female

DRUGS (6)
  1. LIPITOR [Suspect]
     Indication: BLOOD CHOLESTEROL INCREASED
     Dosage: UNK
     Route: 048
     Dates: end: 20100201
  2. FENOFIBRIC ACID [Suspect]
     Dosage: UNK
     Dates: end: 20100101
  3. METOPROLOL [Concomitant]
     Dosage: UNK
  4. METFORMIN [Concomitant]
     Dosage: UNK
  5. GLIMEPIRIDE [Concomitant]
     Dosage: UNK
  6. SITAGLIPTIN [Concomitant]
     Dosage: UNK

REACTIONS (3)
  - DIARRHOEA [None]
  - MALAISE [None]
  - RENAL IMPAIRMENT [None]
